FAERS Safety Report 14900332 (Version 3)
Quarter: 2018Q2

REPORT INFORMATION
  Report Type: Report from Study
  Country: KR (occurrence: KR)
  Receive Date: 20180516
  Receipt Date: 20180523
  Transmission Date: 20180711
  Serious: Yes (Hospitalization)
  Sender: FDA-Public Use
  Company Number: KR-ROCHE-2123157

PATIENT
  Age: 70 Year
  Sex: Female
  Weight: 54 kg

DRUGS (2)
  1. ATEZOLIZUMAB. [Suspect]
     Active Substance: ATEZOLIZUMAB
     Indication: METASTATIC RENAL CELL CARCINOMA
     Dosage: DATE AND DOSE OF LAST ATEZOLIZUMAB ADMINISTERED PRIOR TO ADVERSE EVENT ONSET: 23/APR/2018, 840 MG
     Route: 042
     Dates: start: 20180423
  2. COBIMETINIB. [Suspect]
     Active Substance: COBIMETINIB
     Indication: METASTATIC RENAL CELL CARCINOMA
     Dosage: DATE AND DOSE OF LAST COBIMETINIB ADMINISTERED PRIOR TO ADVERSE EVENT ONSET: 09/MAY/2018, 60 MG
     Route: 048
     Dates: start: 20180423

REACTIONS (1)
  - Altered state of consciousness [Recovered/Resolved]

NARRATIVE: CASE EVENT DATE: 20180510
